FAERS Safety Report 8603783-X (Version None)
Quarter: 2012Q3

REPORT INFORMATION
  Report Type: 
  Country: None (occurrence: None)
  Receive Date: 20120817
  Receipt Date: 20120802
  Transmission Date: 20120928
  Serious: No
  Sender: FDA-Public Use
  Company Number: US-ASTRAZENECA-2012SE43470

PATIENT
  Age: 71 Year
  Sex: Female

DRUGS (1)
  1. SYMBICORT [Suspect]
     Dosage: 320 MCG, BID
     Route: 055
     Dates: start: 20111101

REACTIONS (2)
  - DISEASE RECURRENCE [None]
  - ADVERSE EVENT [None]
